FAERS Safety Report 4658623-0 (Version None)
Quarter: 2005Q2

REPORT INFORMATION
  Report Type: 
  Country: None (occurrence: None)
  Receive Date: 20050511
  Receipt Date: 20050415
  Transmission Date: 20051028
  Serious: Yes (Hospitalization)
  Sender: FDA-Public Use
  Company Number: FR-GLAXOSMITHKLINE-B0378565A

PATIENT
  Age: 22 Year
  Sex: Female
  Weight: 100 kg

DRUGS (2)
  1. MALARONE [Suspect]
     Indication: PLASMODIUM FALCIPARUM INFECTION
     Dosage: 4TAB PER DAY
     Route: 048
     Dates: start: 20050207, end: 20050209
  2. SAVARINE [Concomitant]
     Indication: MALARIA PROPHYLAXIS
     Route: 048
     Dates: start: 20041201, end: 20050201

REACTIONS (4)
  - DRUG INEFFECTIVE [None]
  - FATIGUE [None]
  - PLASMODIUM FALCIPARUM INFECTION [None]
  - UNDERDOSE [None]
